FAERS Safety Report 6886455-1 (Version None)
Quarter: 2010Q3

REPORT INFORMATION
  Report Type: 
  Country: None (occurrence: None)
  Receive Date: 20100729
  Receipt Date: 20090519
  Transmission Date: 20110219
  Serious: No
  Sender: FDA-Public Use
  Company Number: US-PFIZER INC-2009199639

PATIENT
  Sex: Female
  Weight: 56.7 kg

DRUGS (2)
  1. CELEBREX [Suspect]
     Indication: MUSCULOSKELETAL DISCOMFORT
     Dosage: 200 MG, 2X/DAY
     Dates: start: 20090320, end: 20090409
  2. CELEBREX [Suspect]
     Indication: POST PROCEDURAL COMPLICATION

REACTIONS (4)
  - INFLAMMATION [None]
  - PRURITUS [None]
  - RASH [None]
  - URTICARIA [None]
